FAERS Safety Report 7546976-5 (Version None)
Quarter: 2011Q2

REPORT INFORMATION
  Report Type: 
  Country: None (occurrence: None)
  Receive Date: 20110614
  Receipt Date: 20110601
  Transmission Date: 20111010
  Serious: Yes (Hospitalization, Other)
  Sender: FDA-Public Use
  Company Number: US-CELGENEUS-ABX40-09-0280

PATIENT
  Sex: Female

DRUGS (12)
  1. PEGFILGRASTIM [Concomitant]
     Dosage: 6 MILLIGRAM
     Route: 058
     Dates: start: 20060811
  2. ABRAXANE [Suspect]
     Indication: BREAST CANCER
     Dosage: 260 MILLIGRAM/SQ. METER
     Route: 051
     Dates: end: 20061116
  3. ACETAMINOPHEN/DIPHENHYDRAMINE [Concomitant]
     Dates: start: 20061019
  4. ADRIAMYCIN PFS [Suspect]
     Indication: BREAST CANCER
     Dosage: 60 MILLIGRAM/SQ. METER
     Route: 051
  5. BEVACIZUMAB [Suspect]
     Indication: BREAST CANCER
     Dosage: 10 MILLIGRAM/SQ. METER
     Route: 051
  6. GRANISETRON [Concomitant]
     Dates: start: 20060810
  7. HYDROCORTISONE [Concomitant]
     Dates: start: 20060907
  8. BUPROPION HYDROCHLORIDE [Concomitant]
     Dates: start: 20060810
  9. PROCHLORPERAZINE TAB [Concomitant]
     Dates: start: 20060524
  10. TAMOXIFEN CITRATE [Concomitant]
     Dates: start: 20070124
  11. DARBEPOETIN ALPHA [Concomitant]
     Dates: start: 20060907
  12. CYCLOPHOSPHAMIDE [Suspect]
     Indication: BREAST CANCER
     Dosage: 600 MILLIGRAM/SQ. METER
     Route: 051
     Dates: end: 20070719

REACTIONS (2)
  - CONVULSION [None]
  - MULTIPLE SCLEROSIS [None]
